FAERS Safety Report 8333485-9 (Version None)
Quarter: 2012Q2

REPORT INFORMATION
  Report Type: 
  Country: None (occurrence: None)
  Receive Date: 20120503
  Receipt Date: 20101104
  Transmission Date: 20120825
  Serious: No
  Sender: FDA-Public Use
  Company Number: US-TEVA-2010005761

PATIENT
  Sex: Female
  Weight: 72.64 kg

DRUGS (8)
  1. ROBAXIN [Concomitant]
     Indication: MUSCLE SPASMS
  2. LISINOPRIL [Concomitant]
     Indication: HYPERTENSION
     Dates: start: 20080101
  3. NUVIGIL [Suspect]
     Indication: FATIGUE
     Dosage: 150 MILLIGRAM;
     Route: 048
     Dates: start: 20101103, end: 20101103
  4. NEURONTIN [Concomitant]
     Indication: NEURALGIA
     Dates: start: 20080101
  5. CYMBALTA [Concomitant]
     Indication: PAIN IN EXTREMITY
  6. ASPIRIN [Suspect]
  7. CYMBALTA [Concomitant]
     Indication: DEPRESSION
     Dates: start: 20090101
  8. COREG [Concomitant]
     Indication: HYPERTENSION
     Dates: start: 20090101

REACTIONS (3)
  - BLOOD PRESSURE INCREASED [None]
  - BURNING SENSATION [None]
  - HEADACHE [None]
